FAERS Safety Report 4392393-9 (Version None)
Quarter: 2004Q3

REPORT INFORMATION
  Report Type: 
  Country: None (occurrence: None)
  Receive Date: 20040702
  Receipt Date: 20040308
  Transmission Date: 20050211
  Serious: Yes (Other)
  Sender: FDA-Public Use
  Company Number: 2004UW04361

PATIENT
  Age: 79 Year
  Sex: Male
  Weight: 122.4712 kg

DRUGS (7)
  1. CRESTOR [Suspect]
     Indication: BLOOD CHOLESTEROL INCREASED
     Dosage: 10 MG PO
     Route: 048
     Dates: start: 20040301
  2. ATENOLOL [Concomitant]
  3. CARDIZEM [Concomitant]
  4. COUMADIN [Concomitant]
  5. COZAAR [Concomitant]
  6. LANOXIN [Concomitant]
  7. VASOTEC [Concomitant]

REACTIONS (1)
  - POLLAKIURIA [None]
